FAERS Safety Report 5036343-0 (Version None)
Quarter: 2006Q2

REPORT INFORMATION
  Report Type: 
  Country: None (occurrence: None)
  Receive Date: 20060601
  Receipt Date: 20050408
  Transmission Date: 20061013
  Serious: Yes (Hospitalization, Disabling)
  Sender: FDA-Public Use
  Company Number: 336177

PATIENT
  Age: 40 Year
  Sex: Male
  Weight: 94.4 kg

DRUGS (1)
  1. LARIAM [Suspect]
     Indication: MALARIA PROPHYLAXIS
     Dosage: 250 MG ORAL
     Route: 048
     Dates: start: 20010227, end: 20010314

REACTIONS (45)
  - ACTIVITIES OF DAILY LIVING IMPAIRED [None]
  - AGITATION [None]
  - AGORAPHOBIA [None]
  - ANHEDONIA [None]
  - ANXIETY [None]
  - BALANCE DISORDER [None]
  - BLOOD PRESSURE INCREASED [None]
  - CHEST DISCOMFORT [None]
  - DECREASED ACTIVITY [None]
  - DECREASED INTEREST [None]
  - DEPRESSED MOOD [None]
  - DEPRESSION [None]
  - DISTURBANCE IN ATTENTION [None]
  - DIZZINESS [None]
  - DRUG TOXICITY [None]
  - DYSPNOEA [None]
  - DYSURIA [None]
  - EPICONDYLITIS [None]
  - ERYTHEMA [None]
  - FATIGUE [None]
  - GROIN PAIN [None]
  - HAEMATURIA [None]
  - HEADACHE [None]
  - HEART RATE INCREASED [None]
  - HYPERHIDROSIS [None]
  - HYPERVENTILATION [None]
  - INSOMNIA [None]
  - LICHEN PLANUS [None]
  - MAJOR DEPRESSION [None]
  - MOOD ALTERED [None]
  - NIGHTMARE [None]
  - NYSTAGMUS [None]
  - ORAL MUCOSAL DISORDER [None]
  - PAIN IN EXTREMITY [None]
  - PANIC ATTACK [None]
  - PANIC DISORDER [None]
  - PARAESTHESIA [None]
  - RASH PAPULAR [None]
  - SUICIDAL IDEATION [None]
  - TINNITUS [None]
  - URETHRITIS [None]
  - VERTIGO [None]
  - VESTIBULAR DISORDER [None]
  - VISION BLURRED [None]
  - VITREOUS FLOATERS [None]
